FAERS Safety Report 8828260 (Version 1)
Quarter: 2012Q4

REPORT INFORMATION
  Report Type: 
  Country: US (occurrence: US)
  Receive Date: 20121005
  Receipt Date: 20121005
  Transmission Date: 20130627
  Serious: Yes (Hospitalization, Other)
  Sender: FDA-Public Use
  Company Number: US-AMGEN-USASP2012062285

PATIENT
  Age: 64 Year
  Sex: Male

DRUGS (1)
  1. ENBREL [Suspect]
     Indication: RHEUMATOID ARTHRITIS
     Dosage: 50 mg, qwk
     Dates: start: 19990201, end: 20111018

REACTIONS (13)
  - Myelodysplastic syndrome [Not Recovered/Not Resolved]
  - Squamous cell carcinoma [Recovered/Resolved]
  - General physical condition abnormal [Unknown]
  - Excoriation [Recovered/Resolved]
  - Perirectal abscess [Recovered/Resolved]
  - Pneumonia [Recovered/Resolved]
  - Precancerous skin lesion [Not Recovered/Not Resolved]
  - Skin mass [Recovered/Resolved]
  - Rheumatoid arthritis [Not Recovered/Not Resolved]
  - Mobility decreased [Not Recovered/Not Resolved]
  - White blood cell count decreased [Not Recovered/Not Resolved]
  - Pancytopenia [Not Recovered/Not Resolved]
  - Abscess [Recovered/Resolved]
